FAERS Safety Report 6302002-7 (Version None)
Quarter: 2009Q3

REPORT INFORMATION
  Report Type: 
  Country: None (occurrence: None)
  Receive Date: 20090807
  Receipt Date: 20090728
  Transmission Date: 20100115
  Serious: Yes (Disabling)
  Sender: FDA-Public Use
  Company Number: GB-PFIZER INC-2009246383

PATIENT
  Age: 48 Year

DRUGS (1)
  1. CHAMPIX [Suspect]
     Indication: SMOKING CESSATION THERAPY
     Dosage: 500 UG, UNK
     Route: 048
     Dates: start: 20090617, end: 20090623

REACTIONS (4)
  - DEPRESSED MOOD [None]
  - DISTURBANCE IN ATTENTION [None]
  - HEADACHE [None]
  - TOBACCO WITHDRAWAL SYMPTOMS [None]
